FAERS Safety Report 8388063-2 (Version None)
Quarter: 2012Q2

REPORT INFORMATION
  Report Type: 
  Country: None (occurrence: None)
  Receive Date: 20120525
  Receipt Date: 20120521
  Transmission Date: 20120825
  Serious: Yes (Other)
  Sender: FDA-Public Use
  Company Number: BR-ABBOTT-12P-020-0937733-00

PATIENT
  Sex: Female
  Weight: 50 kg

DRUGS (2)
  1. LUVOX [Suspect]
     Indication: OBSESSIVE-COMPULSIVE DISORDER
     Dosage: 1 TABLET IN THE MORNING
     Route: 048
     Dates: end: 20120521
  2. CLONAZEPAM [Concomitant]
     Indication: ANXIETY

REACTIONS (11)
  - MALAISE [None]
  - RETCHING [None]
  - HEADACHE [None]
  - ANXIETY [None]
  - NERVOUSNESS [None]
  - VERTIGO [None]
  - TREMOR [None]
  - ASTHENIA [None]
  - NAUSEA [None]
  - CONVULSION [None]
  - FATIGUE [None]
